FAERS Safety Report 8724339 (Version 2)
Quarter: 2012Q4

REPORT INFORMATION
  Report Type: 
  Country: US (occurrence: US)
  Receive Date: 20120815
  Receipt Date: 20120912
  Transmission Date: 20130627
  Serious: Yes (Other)
  Sender: FDA-Public Use
  Company Number: US-UCBSA-063423

PATIENT
  Age: 37 Year
  Sex: Male

DRUGS (1)
  1. KEPPRA [Suspect]
     Indication: CONVULSION
     Dosage: 500 MG 2  TABLETS IN MORNING AND 500 MG 1 TABLET AT NIGHT

REACTIONS (2)
  - Road traffic accident [Unknown]
  - Convulsion [Recovered/Resolved]
